FAERS Safety Report 10379720 (Version 1)
Quarter: 2014Q3

REPORT INFORMATION
  Report Type: Spontaneous
  Country: AU (occurrence: None)
  Receive Date: 20140808
  Receipt Date: 20140808
  Transmission Date: 20150326
  Serious: Yes (Other)
  Sender: FDA-Public Use
  Company Number: 2467450

PATIENT
  Sex: Male

DRUGS (1)
  1. CARBOPLATIN. [Suspect]
     Active Substance: CARBOPLATIN
     Dates: start: 20140723, end: 20140723

REACTIONS (3)
  - Pharyngeal erythema [None]
  - Throat tightness [None]
  - Pain [None]

NARRATIVE: CASE EVENT DATE: 20140723
